FAERS Safety Report 7352723-2 (Version None)
Quarter: 2011Q1

REPORT INFORMATION
  Report Type: 
  Country: None (occurrence: None)
  Receive Date: 20110315
  Receipt Date: 20110308
  Transmission Date: 20110831
  Serious: Yes (Other)
  Sender: FDA-Public Use
  Company Number: US-PFIZER INC-2011024644

PATIENT
  Sex: Female
  Weight: 50.34 kg

DRUGS (5)
  1. FLAGYL [Suspect]
     Indication: FISTULA
  2. FLAGYL [Suspect]
     Indication: CROHN'S DISEASE
     Dosage: 500 MG QPM, 250 MG QAM
     Route: 048
     Dates: start: 20091223, end: 20110201
  3. HUMIRA [Concomitant]
     Indication: CROHN'S DISEASE
     Dosage: 40 MG, EVERY OTHER WEEK
     Dates: start: 20100609
  4. DIFLUCAN [Concomitant]
     Dosage: 100 MG, 1X/DAY
     Dates: start: 20101216, end: 20101225
  5. ORTHO TRI-CYCLEN [Concomitant]
     Dosage: UNK

REACTIONS (3)
  - ORAL HERPES [None]
  - OROPHARYNGEAL BLISTERING [None]
  - DYSPHAGIA [None]
